FAERS Safety Report 23501923 (Version 2)
Quarter: 2024Q1

REPORT INFORMATION
  Report Type: Spontaneous
  Country: DE (occurrence: DE)
  Receive Date: 20240208
  Receipt Date: 20240312
  Transmission Date: 20240410
  Serious: Yes (Life-Threatening, Hospitalization, Other)
  Sender: FDA-Public Use
  Company Number: DE-GILEAD-2023-0656580

PATIENT
  Sex: Female
  Weight: 56.6 kg

DRUGS (30)
  1. PEMBROLIZUMAB [Suspect]
     Active Substance: PEMBROLIZUMAB
     Indication: Non-small cell lung cancer metastatic
     Dosage: 200 MG
     Route: 042
     Dates: start: 20231228, end: 20231228
  2. CARBOPLATIN [Suspect]
     Active Substance: CARBOPLATIN
     Indication: Non-small cell lung cancer metastatic
     Dosage: 551 MG
     Route: 042
     Dates: start: 20231228, end: 20231228
  3. PEMETREXED [Suspect]
     Active Substance: PEMETREXED
     Indication: Non-small cell lung cancer metastatic
     Dosage: 950 MG
     Route: 042
     Dates: end: 20231228
  4. PEMETREXED [Suspect]
     Active Substance: PEMETREXED
     Dosage: 950 MG
     Route: 042
     Dates: start: 20231228, end: 20231228
  5. ZIMBERELIMAB [Suspect]
     Active Substance: ZIMBERELIMAB
     Indication: Non-small cell lung cancer metastatic
     Dosage: UNK
  6. ONDANSETRON [Concomitant]
     Active Substance: ONDANSETRON
     Indication: Prophylaxis
     Dosage: UNK, CYCLE 1-4
     Route: 042
     Dates: start: 20231228
  7. ATORVASTATIN [Concomitant]
     Active Substance: ATORVASTATIN
     Indication: Prophylaxis
     Route: 048
     Dates: start: 2011
  8. MORPHINE SULFATE [Concomitant]
     Active Substance: MORPHINE SULFATE
     Indication: Dyspnoea
     Dosage: UNK
     Route: 058
     Dates: start: 20240110
  9. SODIUM [Concomitant]
     Active Substance: SODIUM
     Indication: Dysphagia
     Route: 042
     Dates: start: 20231226
  10. DORZOLAMIDE [Concomitant]
     Active Substance: DORZOLAMIDE
     Indication: Glaucoma
     Dosage: UNK
     Route: 001
     Dates: start: 2004
  11. DORZOLAMIDE [Concomitant]
     Active Substance: DORZOLAMIDE
     Dosage: UNK
     Route: 001
     Dates: start: 2004
  12. NEBIVOLOL [Concomitant]
     Active Substance: NEBIVOLOL
     Indication: Hypertension
     Dosage: UNK
     Route: 048
     Dates: start: 2018
  13. DEXAMETHASONE [Concomitant]
     Active Substance: DEXAMETHASONE
     Indication: Premedication
     Dosage: UNK
     Route: 048
     Dates: start: 20231227, end: 20231229
  14. CHOLECALCIFEROL [Concomitant]
     Active Substance: CHOLECALCIFEROL
     Indication: Prophylaxis
     Dosage: UNK
     Route: 048
     Dates: start: 201602
  15. CERTOPARIN SODIUM [Concomitant]
     Active Substance: CERTOPARIN SODIUM
     Indication: Atrial fibrillation
     Dosage: UNK
     Route: 058
     Dates: start: 20231227
  16. CERTOPARIN SODIUM [Concomitant]
     Active Substance: CERTOPARIN SODIUM
     Dosage: UNK
     Route: 058
     Dates: start: 20231227
  17. VITAMIN B12 [Concomitant]
     Active Substance: CYANOCOBALAMIN
     Indication: Prophylaxis
     Dosage: UNK
     Route: 058
     Dates: start: 20231221
  18. SODIUM CHLORIDE [Concomitant]
     Active Substance: SODIUM CHLORIDE
     Indication: Dysphagia
     Dosage: UNK
     Route: 042
     Dates: start: 20231226
  19. PANTOPRAZOLE [Concomitant]
     Active Substance: PANTOPRAZOLE
     Indication: Prophylaxis
     Dosage: UNK
     Route: 048
     Dates: start: 201111
  20. PIPERACILLIN [Concomitant]
     Active Substance: PIPERACILLIN
     Indication: Prophylaxis
     Dosage: UNK
     Route: 042
     Dates: start: 20231226, end: 20231227
  21. PIPERACILLIN [Concomitant]
     Active Substance: PIPERACILLIN
     Indication: Febrile neutropenia
     Dosage: UNK
     Route: 042
     Dates: start: 20240107
  22. PIPERACILLIN [Concomitant]
     Active Substance: PIPERACILLIN
     Indication: Neutropenia
     Dosage: UNK
     Route: 042
     Dates: start: 20231126
  23. VITAMIN B12 [Concomitant]
     Active Substance: CYANOCOBALAMIN
     Indication: Prophylaxis
     Route: 058
     Dates: start: 20231221
  24. TAUROLIDINE [Concomitant]
     Active Substance: TAUROLIDINE
     Indication: Systemic candida
     Dosage: UNK
     Route: 042
     Dates: start: 20240109, end: 20240109
  25. POTASSIUM CHLORIDE [Concomitant]
     Active Substance: POTASSIUM CHLORIDE
     Indication: Hypokalaemia
     Dosage: UNK
     Route: 042
     Dates: start: 20240108
  26. AMINO ACIDS\DEXTROSE\ELECTROLYTES NOS\SOYBEAN OIL [Concomitant]
     Active Substance: AMINO ACIDS\DEXTROSE\ELECTROLYTES NOS\SOYBEAN OIL
     Indication: Dysphagia
     Dosage: UNK
     Route: 042
     Dates: start: 20231226
  27. LEUCOVORIN [Concomitant]
     Active Substance: LEUCOVORIN\LEUCOVORIN CALCIUM
     Indication: Prophylaxis
     Dosage: UNK
     Route: 048
     Dates: start: 20231221
  28. CASPOFUNGIN [Concomitant]
     Active Substance: CASPOFUNGIN
     Dosage: UNK
     Route: 042
     Dates: start: 20240109
  29. MAGNESIUM [Concomitant]
     Active Substance: MAGNESIUM
     Indication: Atrial fibrillation
     Dosage: UNK
     Route: 042
     Dates: start: 20240109
  30. PREDNISONE [Concomitant]
     Active Substance: PREDNISONE
     Indication: Prophylaxis
     Dosage: UNK
     Route: 042
     Dates: start: 20240113

REACTIONS (3)
  - Platelet count decreased [Recovered/Resolved]
  - Febrile neutropenia [Recovered/Resolved]
  - Dysphagia [Not Recovered/Not Resolved]

NARRATIVE: CASE EVENT DATE: 20231225
